FAERS Safety Report 8561442-6 (Version None)
Quarter: 2012Q3

REPORT INFORMATION
  Report Type: 
  Country: None (occurrence: None)
  Receive Date: 20120802
  Receipt Date: 20120727
  Transmission Date: 20120928
  Serious: Yes (Hospitalization)
  Sender: FDA-Public Use
  Company Number: JP-GLAXOSMITHKLINE-B0816520A

PATIENT
  Sex: Male

DRUGS (9)
  1. LEVOTOMIN [Concomitant]
     Indication: SLEEP DISORDER
     Dosage: 100MG PER DAY
     Route: 048
  2. LAMICTAL [Suspect]
     Route: 048
  3. LODOPIN [Concomitant]
     Indication: BIPOLAR I DISORDER
     Dosage: 600MG PER DAY
     Route: 048
     Dates: end: 20120710
  4. LAMICTAL [Suspect]
     Indication: BIPOLAR I DISORDER
     Dosage: 12.5MG PER DAY
     Route: 048
     Dates: start: 20120321
  5. DEPAKENE [Concomitant]
     Indication: BIPOLAR I DISORDER
     Dosage: 4800MG PER DAY
     Route: 048
     Dates: end: 20120710
  6. LAMICTAL [Suspect]
     Dosage: 100MG PER DAY
     Route: 048
  7. PROMAZINE HYDROCHLORIDE [Concomitant]
     Indication: SLEEP DISORDER
     Dosage: 100MG PER DAY
     Route: 048
     Dates: start: 20120515, end: 20120710
  8. ABILIFY [Concomitant]
     Indication: BIPOLAR I DISORDER
     Dosage: 27MG PER DAY
     Route: 048
     Dates: end: 20120710
  9. SEROQUEL [Concomitant]
     Dosage: 450MG PER DAY
     Route: 048

REACTIONS (2)
  - NEUROLEPTIC MALIGNANT SYNDROME [None]
  - BLOOD CREATINE PHOSPHOKINASE INCREASED [None]
